FAERS Safety Report 6416865-8 (Version None)
Quarter: 2009Q4

REPORT INFORMATION
  Report Type: 
  Country: None (occurrence: None)
  Receive Date: 20091027
  Receipt Date: 20091013
  Transmission Date: 20100525
  Serious: Yes (Hospitalization, Other)
  Sender: FDA-Public Use
  Company Number: GB-MYLANLABS-2009S1017937

PATIENT
  Age: 47 Year
  Sex: Female
  Weight: 102 kg

DRUGS (2)
  1. SERTRALINE HCL [Suspect]
     Indication: DEPRESSION
     Route: 048
  2. CLOZARIL [Suspect]
     Indication: SCHIZOPHRENIA

REACTIONS (2)
  - CARDIOMYOPATHY [None]
  - LOWER RESPIRATORY TRACT INFECTION [None]
